FAERS Safety Report 9979140 (Version 1)
Quarter: 2014Q1

REPORT INFORMATION
  Report Type: Report from Study
  Country: US (occurrence: US)
  Receive Date: 20140306
  Receipt Date: 20140306
  Transmission Date: 20141002
  Serious: No
  Sender: FDA-Public Use
  Company Number: US-ABBVIE-13P-163-1170241-00

PATIENT
  Age: 53 Year
  Sex: Female
  Weight: 51.76 kg

DRUGS (5)
  1. HUMIRA [Suspect]
     Indication: PSORIASIS
     Dates: start: 20131009, end: 20131009
  2. HUMIRA [Suspect]
     Indication: PSORIATIC ARTHROPATHY
     Dates: start: 20131016, end: 20131016
  3. TACLONEX [Concomitant]
     Indication: PSORIASIS
     Route: 067
  4. CALCIUM [Concomitant]
     Indication: MINERAL SUPPLEMENTATION
  5. VITAMINS [Concomitant]
     Indication: VITAMIN SUPPLEMENTATION

REACTIONS (9)
  - Vulvovaginal discomfort [Not Recovered/Not Resolved]
  - Protein urine present [Unknown]
  - Chills [Recovered/Resolved]
  - Pyrexia [Recovered/Resolved]
  - Dizziness [Recovered/Resolved]
  - Back pain [Recovered/Resolved]
  - Kidney infection [Recovered/Resolved]
  - Urinary tract infection [Not Recovered/Not Resolved]
  - Herpes simplex [Not Recovered/Not Resolved]
